FAERS Safety Report 19514751 (Version 2)
Quarter: 2021Q4

REPORT INFORMATION
  Report Type: Spontaneous
  Country: ES (occurrence: ES)
  Receive Date: 20210709
  Receipt Date: 20211007
  Transmission Date: 20220303
  Serious: Yes (Other)
  Sender: FDA-Public Use
  Company Number: ES-MILLICENT HOLDINGS LTD.-MILL20210682

PATIENT
  Age: 51 Year
  Sex: Female

DRUGS (2)
  1. INTRAROSA [Suspect]
     Active Substance: PRASTERONE
     Indication: Atrophic vulvovaginitis
     Dosage: 1 DOSAGE FORM
     Route: 067
     Dates: start: 20210512, end: 20210612
  2. INTRAROSA [Suspect]
     Active Substance: PRASTERONE
     Indication: Dyspareunia

REACTIONS (1)
  - Thrombocytopenia [Not Recovered/Not Resolved]

NARRATIVE: CASE EVENT DATE: 20210501
